FAERS Safety Report 25487823 (Version 2)
Quarter: 2025Q3

REPORT INFORMATION
  Report Type: Spontaneous
  Country: CL (occurrence: CL)
  Receive Date: 20250627
  Receipt Date: 20250707
  Transmission Date: 20251021
  Serious: Yes (Life-Threatening, Hospitalization, Other)
  Sender: UNICHEM
  Company Number: CL-UNICHEM LABORATORIES LIMITED-UNI-2025-CL-002606

PATIENT

DRUGS (3)
  1. LAMOTRIGINE [Suspect]
     Active Substance: LAMOTRIGINE
     Indication: Affective disorder
     Route: 048
  2. CLOTIAZEPAM [Concomitant]
     Active Substance: CLOTIAZEPAM
     Indication: Affective disorder
     Route: 065
  3. LEVETIRACETAM [Concomitant]
     Active Substance: LEVETIRACETAM
     Indication: Seizure
     Route: 065

REACTIONS (6)
  - Toxicity to various agents [Unknown]
  - Stridor [Recovered/Resolved]
  - Intentional overdose [Unknown]
  - Altered state of consciousness [Recovered/Resolved]
  - Sinus tachycardia [Recovered/Resolved]
  - Nystagmus [Recovered/Resolved]
